FAERS Safety Report 6907707-2 (Version None)
Quarter: 2010Q3

REPORT INFORMATION
  Report Type: 
  Country: None (occurrence: None)
  Receive Date: 20100805
  Receipt Date: 20100802
  Transmission Date: 20110219
  Serious: Yes (Life-Threatening, Hospitalization, Other)
  Sender: FDA-Public Use
  Company Number: GB-ROXANE LABORATORIES, INC.-2010-RO-00950RO

PATIENT
  Age: 62 Year
  Sex: Female

DRUGS (6)
  1. METHOTREXATE [Suspect]
     Indication: CENTRAL NERVOUS SYSTEM LYMPHOMA
  2. CYTARABINE [Suspect]
     Indication: CENTRAL NERVOUS SYSTEM LYMPHOMA
  3. FUSIDIC ACID [Suspect]
     Indication: SEPSIS
  4. DOXYCYCLINE [Suspect]
     Indication: SEPSIS
  5. VANCOMYCIN [Suspect]
     Indication: SEPSIS
  6. THIAMINE [Suspect]
     Indication: WERNICKE'S ENCEPHALOPATHY
     Route: 051

REACTIONS (8)
  - HYPOMAGNESAEMIA [None]
  - HYPOPHAGIA [None]
  - MULTI-ORGAN FAILURE [None]
  - NAUSEA [None]
  - SEPSIS [None]
  - VOMITING [None]
  - WERNICKE'S ENCEPHALOPATHY [None]
  - WERNICKE-KORSAKOFF SYNDROME [None]
